FAERS Safety Report 5249939-8 (Version None)
Quarter: 2007Q1

REPORT INFORMATION
  Report Type: 
  Country: None (occurrence: None)
  Receive Date: 20070228
  Receipt Date: 20060106
  Transmission Date: 20070707
  Serious: No
  Sender: FDA-Public Use
  Company Number: US-GLAXOSMITHKLINE-A0588156A

PATIENT
  Sex: Female

DRUGS (2)
  1. LAMICTAL [Suspect]
     Indication: MOOD SWINGS
     Dosage: 100MG PER DAY
     Route: 048
  2. CYMBALTA [Concomitant]

REACTIONS (1)
  - VAGINAL DISCHARGE [None]
